FAERS Safety Report 6487059-5 (Version None)
Quarter: 2009Q4

REPORT INFORMATION
  Report Type: 
  Country: None (occurrence: None)
  Receive Date: 20091209
  Receipt Date: 20091209
  Transmission Date: 20100525
  Serious: Yes (Life-Threatening, Hospitalization, Disabling)
  Sender: FDA-Public Use
  Company Number: None

PATIENT
  Sex: Male
  Weight: 75 kg

DRUGS (1)
  1. TAXOL [Suspect]
     Indication: ANGINA PECTORIS
     Dates: start: 20041109, end: 20090107

REACTIONS (3)
  - CHEST PAIN [None]
  - ISCHAEMIA [None]
  - THROMBOSIS IN DEVICE [None]
